FAERS Safety Report 19617627 (Version 1)
Quarter: 2021Q3

REPORT INFORMATION
  Report Type: Spontaneous
  Country: US (occurrence: US)
  Receive Date: 20210727
  Receipt Date: 20210727
  Transmission Date: 20211014
  Serious: No
  Sender: FDA-Public Use
  Company Number: US-ABBVIE-21K-163-3916812-00

PATIENT
  Sex: Female

DRUGS (4)
  1. NORETHINDRONE. [Concomitant]
     Active Substance: NORETHINDRONE
     Indication: PRODUCT USED FOR UNKNOWN INDICATION
  2. ORILISSA [Suspect]
     Active Substance: ELAGOLIX SODIUM
     Indication: ENDOMETRIOSIS
     Dosage: 1 MONTH HIGH DOSE
     Route: 048
  3. ORILISSA [Suspect]
     Active Substance: ELAGOLIX SODIUM
     Dosage: LOW DOSE 1 MONTH
     Route: 048
  4. LUPRON DEPOT [Suspect]
     Active Substance: LEUPROLIDE ACETATE
     Indication: PRODUCT USED FOR UNKNOWN INDICATION
     Route: 065

REACTIONS (9)
  - Hot flush [Unknown]
  - Visual impairment [Unknown]
  - Hypoacusis [Unknown]
  - Amnesia [Unknown]
  - Maternal exposure during pregnancy [Unknown]
  - Unevaluable event [Unknown]
  - In vitro fertilisation [Unknown]
  - Crying [Unknown]
  - Migraine [Unknown]
